FAERS Safety Report 5142163-9 (Version None)
Quarter: 2006Q4

REPORT INFORMATION
  Report Type: 
  Country: None (occurrence: None)
  Receive Date: 20061027
  Receipt Date: 20061023
  Transmission Date: 20070319
  Serious: Yes (Hospitalization, Other)
  Sender: FDA-Public Use
  Company Number: 2006SP004401

PATIENT
  Age: 49 Year
  Sex: Female
  Weight: 55.3388 kg

DRUGS (7)
  1. PEG-INTRON [Suspect]
     Indication: HEPATITIS C
     Dosage: SC
     Route: 058
     Dates: start: 20060319
  2. RIBAVIRIN [Suspect]
     Indication: HEPATITIS C
     Dosage: PO
     Route: 048
     Dates: start: 20060319
  3. DARVON [Concomitant]
  4. LEXAPRO [Concomitant]
  5. LOTREL [Concomitant]
  6. MENEST [Concomitant]
  7. XANAX [Concomitant]

REACTIONS (19)
  - ABDOMINAL DISTENSION [None]
  - AGITATION [None]
  - ALOPECIA [None]
  - ASPIRATION [None]
  - CLONIC CONVULSION [None]
  - DYSPHAGIA [None]
  - DYSPHASIA [None]
  - DYSPNOEA [None]
  - FACIAL PALSY [None]
  - HALLUCINATION, AUDITORY [None]
  - HYPOTENSION [None]
  - HYPOTHYROIDISM [None]
  - IMPULSE-CONTROL DISORDER [None]
  - INCORRECT DOSE ADMINISTERED [None]
  - RED BLOOD CELL COUNT DECREASED [None]
  - SENSORY DISTURBANCE [None]
  - THINKING ABNORMAL [None]
  - TONGUE PARALYSIS [None]
  - WEIGHT INCREASED [None]
